FAERS Safety Report 5106806-8 (Version None)
Quarter: 2006Q3

REPORT INFORMATION
  Report Type: 
  Country: None (occurrence: None)
  Receive Date: 20060918
  Receipt Date: 20060906
  Transmission Date: 20061208
  Serious: Yes (Hospitalization)
  Sender: FDA-Public Use
  Company Number: US-SANOFI-SYNTHELABO-A03200605545

PATIENT
  Sex: Male

DRUGS (11)
  1. ZOLADEX [Suspect]
     Indication: PROSTATE CANCER
     Route: 065
     Dates: start: 20050101, end: 20050101
  2. ELIGARD [Suspect]
     Indication: PROSTATE CANCER
     Route: 058
     Dates: start: 20060623
  3. AZATHIOPRINE [Suspect]
     Indication: IMMUNOSUPPRESSANT DRUG THERAPY
     Dosage: UNK
     Route: 048
  4. CELLCEPT [Suspect]
     Indication: IMMUNOSUPPRESSANT DRUG THERAPY
     Dosage: UNK
     Route: 048
  5. CYCLOSPORINE [Suspect]
     Indication: IMMUNOSUPPRESSANT DRUG THERAPY
     Dosage: UNK
     Route: 048
  6. MULTIVITAMIN [Concomitant]
     Dosage: UNK
     Route: 048
  7. OMEPRAZOLE [Concomitant]
     Dosage: UNK
     Route: 048
  8. LORAZEPAM [Concomitant]
     Dosage: UNK
     Route: 048
  9. LASIX [Concomitant]
     Route: 048
  10. TERAZOSIN HCL [Concomitant]
     Dosage: UNK
     Route: 048
  11. LESCOL [Concomitant]
     Dosage: UNK
     Route: 048

REACTIONS (4)
  - ARRHYTHMIA [None]
  - CHEST PAIN [None]
  - DRUG INTERACTION [None]
  - VENTRICULAR EXTRASYSTOLES [None]
